FAERS Safety Report 4796121-4 (Version None)
Quarter: 2005Q4

REPORT INFORMATION
  Report Type: 
  Country: None (occurrence: None)
  Receive Date: 20051007
  Receipt Date: 20050929
  Transmission Date: 20060501
  Serious: Yes (Life-Threatening, Other)
  Sender: FDA-Public Use
  Company Number: COV2-2005-00034

PATIENT
  Age: 28 Year
  Sex: Male
  Weight: 54 kg

DRUGS (10)
  1. FOSRENOL [Suspect]
     Indication: HYPERPHOSPHATAEMIA
     Dosage: 750 MG, 3X/DAY: TID, ORAL
     Route: 048
     Dates: start: 20050314
  2. LIPITOR [Concomitant]
  3. PROTONIX   PHARMACIA (PANTOPRAZOLE) TABLET [Concomitant]
  4. AVANDIA [Concomitant]
  5. EPOGEN (EPOETIN ALFA) INFUSION [Concomitant]
  6. HECTOROL (DOXERCALCIFEROL) INFUSION [Concomitant]
  7. VENOFER (SACCHARATED IRON OXIDE) INFUSION [Concomitant]
  8. CARDIZEM (DILTIAZEM HYDROCHLORIDE) TABLET [Concomitant]
  9. ALTACE (RAMIPRIL) TABLET [Concomitant]
  10. FLOMAX CSL (TAMSULOSIN HYDROCHLORIDE) [Concomitant]

REACTIONS (9)
  - BLOOD CREATININE INCREASED [None]
  - BLOOD GLUCOSE INCREASED [None]
  - BLOOD UREA INCREASED [None]
  - DIALYSIS [None]
  - DYSPNOEA [None]
  - HAEMATURIA [None]
  - HYPERKALAEMIA [None]
  - NAUSEA [None]
  - VOMITING [None]
